FAERS Safety Report 5812252-1 (Version None)
Quarter: 2008Q3

REPORT INFORMATION
  Report Type: 
  Country: None (occurrence: None)
  Receive Date: 20080711
  Receipt Date: 20080701
  Transmission Date: 20090109
  Serious: Yes (Death, Hospitalization)
  Sender: FDA-Public Use
  Company Number: 2008-02391

PATIENT
  Age: 55 Year
  Sex: Female
  Weight: 49.9 kg

DRUGS (4)
  1. VELCADE [Suspect]
     Indication: MULTIPLE MYELOMA
     Dosage: UNK, UNK, UNK
  2. ESCITALOPRAM OXALATE [Concomitant]
  3. KLONOPIN [Concomitant]
  4. DEXAMETHASONE [Concomitant]

REACTIONS (6)
  - BLOOD CALCIUM INCREASED [None]
  - BONE PAIN [None]
  - CATATONIA [None]
  - COMA [None]
  - LETHARGY [None]
  - PERIARTHRITIS [None]
